FAERS Safety Report 5632746-1 (Version None)
Quarter: 2008Q1

REPORT INFORMATION
  Report Type: 
  Country: None (occurrence: None)
  Receive Date: 20080221
  Receipt Date: 20080215
  Transmission Date: 20080703
  Serious: Yes (Hospitalization, Other)
  Sender: FDA-Public Use
  Company Number: US-JNJFOC-20080203725

PATIENT
  Sex: Female
  Weight: 68.04 kg

DRUGS (13)
  1. DURAGESIC-100 [Suspect]
     Route: 062
  2. DURAGESIC-100 [Suspect]
     Indication: PAIN
     Route: 062
  3. QUINAPRIL [Suspect]
     Indication: BLOOD PRESSURE
     Route: 048
  4. CLONAZEPAM [Concomitant]
     Indication: CONVULSION
     Route: 048
  5. VERAPAMIL [Concomitant]
     Route: 048
  6. LYRICA [Concomitant]
     Indication: FIBROMYALGIA
     Route: 048
  7. LIDODERM [Concomitant]
     Indication: PAIN
     Route: 062
  8. PREVACID [Concomitant]
     Indication: GASTROOESOPHAGEAL REFLUX DISEASE
     Route: 048
  9. LASIX [Concomitant]
     Indication: DIURETIC THERAPY
     Route: 048
  10. KEFLEX [Concomitant]
     Indication: URINARY TRACT INFECTION
     Route: 048
  11. ASTELIN [Concomitant]
     Indication: MULTIPLE ALLERGIES
     Route: 055
  12. ASPIRIN [Concomitant]
     Route: 048
  13. MIRAPEX [Concomitant]
     Route: 048

REACTIONS (11)
  - ASTHMA [None]
  - BLOOD CHOLESTEROL INCREASED [None]
  - BLOOD PRESSURE DECREASED [None]
  - DEPRESSION [None]
  - DYSPNOEA [None]
  - FALL [None]
  - FIBROMYALGIA [None]
  - FRACTURE [None]
  - LOSS OF CONSCIOUSNESS [None]
  - MUSCLE SPASMS [None]
  - THERAPY CESSATION [None]
